FAERS Safety Report 6401978-7 (Version None)
Quarter: 2009Q4

REPORT INFORMATION
  Report Type: 
  Country: None (occurrence: None)
  Receive Date: 20091015
  Receipt Date: 20091006
  Transmission Date: 20100525
  Serious: Yes (Hospitalization)
  Sender: FDA-Public Use
  Company Number: B0597518A

PATIENT
  Sex: Female
  Weight: 83 kg

DRUGS (8)
  1. LAPATINIB [Suspect]
     Indication: BREAST CANCER
     Dosage: 1250MG PER DAY
     Route: 048
     Dates: start: 20090813
  2. EPIRUBICIN [Suspect]
     Indication: BREAST CANCER
     Dosage: 170MG EVERY 3 WEEKS
     Route: 042
     Dates: start: 20090813
  3. CYCLOPHOSPHAMIDE [Suspect]
     Indication: BREAST CANCER
     Dosage: 1134MG EVERY 3 WEEKS
     Route: 042
     Dates: start: 20090813
  4. UNKNOWN [Concomitant]
     Dosage: 30DROP PER DAY
  5. ASPIRIN [Concomitant]
     Dosage: 1TAB PER DAY
  6. BLOPRESS [Concomitant]
     Dosage: 2TAB PER DAY
  7. LERCANIDIPINE [Concomitant]
     Dosage: 1TAB PER DAY
  8. NEBIVOLOL [Concomitant]
     Dosage: 2TAB PER DAY

REACTIONS (2)
  - PALMAR-PLANTAR ERYTHRODYSAESTHESIA SYNDROME [None]
  - PANCYTOPENIA [None]
